FAERS Safety Report 20321879 (Version 1)
Quarter: 2022Q1

REPORT INFORMATION
  Report Type: Spontaneous
  Country: US (occurrence: US)
  Receive Date: 20220111
  Receipt Date: 20220111
  Transmission Date: 20220423
  Serious: Yes (Hospitalization)
  Sender: FDA-Public Use
  Company Number: US-SA-2022SA002960

PATIENT
  Age: 59 Year
  Sex: Female

DRUGS (2)
  1. PLAVIX [Suspect]
     Active Substance: CLOPIDOGREL BISULFATE
     Indication: Anticoagulant therapy
     Dosage: 75 MG, QD
     Route: 048
     Dates: start: 20211020
  2. RUXOLITINIB [Suspect]
     Active Substance: RUXOLITINIB
     Indication: Hypereosinophilic syndrome
     Dosage: 15 MG, BID
     Route: 048
     Dates: start: 20211026

REACTIONS (1)
  - Skin laceration [Recovering/Resolving]

NARRATIVE: CASE EVENT DATE: 20211213
